FAERS Safety Report 7171233-9 (Version None)
Quarter: 2010Q4

REPORT INFORMATION
  Report Type: 
  Country: None (occurrence: None)
  Receive Date: 20101217
  Receipt Date: 20101215
  Transmission Date: 20110411
  Serious: Yes (Hospitalization, Other)
  Sender: FDA-Public Use
  Company Number: US-ROXANE LABORATORIES, INC.-2010-RO-01695RO

PATIENT
  Age: 55 Year
  Sex: Female

DRUGS (6)
  1. METHOTREXATE [Suspect]
     Indication: PUSTULAR PSORIASIS
  2. METHOTREXATE [Suspect]
  3. CYCLOSPORINE [Suspect]
     Indication: PUSTULAR PSORIASIS
  4. CYCLOSPORINE [Suspect]
  5. ADALIMUMAB [Suspect]
     Indication: PUSTULAR PSORIASIS
  6. ADALIMUMAB [Suspect]
     Indication: PSORIATIC ARTHROPATHY

REACTIONS (5)
  - HYPERCHOLESTEROLAEMIA [None]
  - HYPERKALAEMIA [None]
  - HYPERTENSION [None]
  - NON-HODGKIN'S LYMPHOMA [None]
  - PSORIASIS [None]
